FAERS Safety Report 8268235-8 (Version None)
Quarter: 2012Q2

REPORT INFORMATION
  Report Type: 
  Country: None (occurrence: None)
  Receive Date: 20120404
  Receipt Date: 20120328
  Transmission Date: 20120825
  Serious: Yes (Death, Hospitalization)
  Sender: FDA-Public Use
  Company Number: 2011SP042747

PATIENT
  Age: 63 Year
  Sex: Male

DRUGS (1)
  1. DEXAMETHASONE [Suspect]
     Indication: PANCREATIC CARCINOMA
     Dosage: 4 MG, BID, PO
     Route: 048
     Dates: start: 20110824, end: 20110831

REACTIONS (7)
  - PANCREATIC CARCINOMA [None]
  - BILIARY SEPSIS [None]
  - LIVER FUNCTION TEST ABNORMAL [None]
  - ESCHERICHIA SEPSIS [None]
  - APPETITE DISORDER [None]
  - PULMONARY EMBOLISM [None]
  - NEOPLASM PROGRESSION [None]
